FAERS Safety Report 8984700 (Version 2)
Quarter: 2014Q3

REPORT INFORMATION
  Report Type: Spontaneous
  Country: US (occurrence: US)
  Receive Date: 20121226
  Receipt Date: 20140731
  Transmission Date: 20150326
  Serious: Yes (Hospitalization)
  Sender: FDA-Public Use
  Company Number: US-BAYER-2012-133372

PATIENT
  Age: 47 Year
  Sex: Female
  Weight: 68.9 kg

DRUGS (13)
  1. ROCEPHIN [Concomitant]
     Active Substance: CEFTRIAXONE SODIUM
     Dosage: 1 G, UNK
     Route: 042
  2. SAFYRAL [Suspect]
     Active Substance: DROSPIRENONE\ETHINYL ESTRADIOL\LEVOMEFOLATE CALCIUM
     Dosage: UNK
     Route: 048
     Dates: start: 20120510, end: 20120902
  3. SOMA [Concomitant]
     Active Substance: CARISOPRODOL
  4. HYDROCODONE [Concomitant]
     Active Substance: HYDROCODONE
     Route: 048
  5. DOXYCYCLINE HYCLATE. [Concomitant]
     Active Substance: DOXYCYCLINE HYCLATE
     Dosage: 100 MG, BID
     Route: 048
  6. DRUGS FOR OBSTRUCTIVE AIRWAY DISEASES [Concomitant]
  7. OTHER ANALGESICS AND ANTIPYRETICS [Concomitant]
  8. XANAX [Concomitant]
     Active Substance: ALPRAZOLAM
  9. XANAX [Concomitant]
     Active Substance: ALPRAZOLAM
  10. TORADOL [Concomitant]
     Active Substance: KETOROLAC TROMETHAMINE
     Dosage: 30 MG, UNK
     Route: 042
  11. LEVOFLOXACIN [Concomitant]
     Active Substance: LEVOFLOXACIN
     Dosage: 750 MG, UNK
     Route: 048
  12. VALIUM [Concomitant]
     Active Substance: DIAZEPAM
  13. DIAZEPAM. [Concomitant]
     Active Substance: DIAZEPAM
     Dosage: 5 MG, UNK
     Route: 048

REACTIONS (4)
  - Injury [None]
  - Emotional distress [None]
  - Pulmonary embolism [None]
  - Deep vein thrombosis [None]

NARRATIVE: CASE EVENT DATE: 20120902
